FAERS Safety Report 24792834 (Version 2)
Quarter: 2025Q3

REPORT INFORMATION
  Report Type: Report from Study
  Country: RU (occurrence: RU)
  Receive Date: 20241231
  Receipt Date: 20250803
  Transmission Date: 20251020
  Serious: Yes (Other)
  Sender: ALEXION PHARMACEUTICALS
  Company Number: RU-AstraZeneca-CH-00774434A

PATIENT
  Age: 10 Year
  Sex: Female
  Weight: 44 kg

DRUGS (1)
  1. SELUMETINIB [Suspect]
     Active Substance: SELUMETINIB
     Indication: Neurofibroma
     Dosage: 25 MILLIGRAM, Q12H
     Dates: start: 20211210

REACTIONS (2)
  - Anal fissure [Recovered/Resolved]
  - Paronychia [Recovered/Resolved]

NARRATIVE: CASE EVENT DATE: 20230801
